FAERS Safety Report 18659090 (Version 1)
Quarter: 2020Q4

REPORT INFORMATION
  Report Type: Spontaneous
  Country: CA (occurrence: CA)
  Receive Date: 20201223
  Receipt Date: 20201223
  Transmission Date: 20210114
  Serious: Yes (Other)
  Sender: FDA-Public Use
  Company Number: CA-PURDUE-USA-2020-0192333

PATIENT
  Age: 39 Year
  Sex: Female

DRUGS (44)
  1. FENTANYL. [Suspect]
     Active Substance: FENTANYL
     Dosage: 1 DF AT 11 GESTATIONAL WEEK
     Route: 042
  2. METHADONE [Suspect]
     Active Substance: METHADONE HYDROCHLORIDE
     Dosage: 155 MG AT 23 GESTATIONAL WEEK
     Route: 065
  3. NON-PMN MORPHINE SULFATE [Suspect]
     Active Substance: MORPHINE SULFATE
     Dosage: 100 MG AT 30 GESTATIONAL WEEK
     Route: 048
  4. NON-PMN MORPHINE SULFATE [Suspect]
     Active Substance: MORPHINE SULFATE
     Dosage: 30 MG AT 29 GESTATIONAL WEEK
     Route: 048
  5. FENTANYL. [Suspect]
     Active Substance: FENTANYL
     Dosage: 1 DF AT 23 GESTATIONAL WEEK
     Route: 042
  6. FENTANYL. [Suspect]
     Active Substance: FENTANYL
     Dosage: 2-3 DF AT 19 GESTATIONAL WEEK
     Route: 042
  7. METHADONE [Suspect]
     Active Substance: METHADONE HYDROCHLORIDE
     Dosage: 80 MG AT 30 GESTATIONAL WEEK
     Route: 065
  8. NON-PMN MORPHINE SULFATE [Suspect]
     Active Substance: MORPHINE SULFATE
     Dosage: 400 MG AT 23 GESTATIONAL WEEK
     Route: 048
  9. NON-PMN MORPHINE SULFATE [Suspect]
     Active Substance: MORPHINE SULFATE
     Dosage: 300 MG AT 19 GESTATIONAL WEEK
     Route: 048
  10. NON-PMN MORPHINE SULFATE [Suspect]
     Active Substance: MORPHINE SULFATE
     Dosage: 360 MG AT 11 GESTATIONAL WEEK
     Route: 048
  11. NON-PMN HYDROMORPHONE HCL [Suspect]
     Active Substance: HYDROMORPHONE HYDROCHLORIDE
     Indication: WITHDRAWAL SYNDROME
     Dosage: 10 MG, BID
     Route: 042
  12. FENTANYL. [Suspect]
     Active Substance: FENTANYL
     Dosage: 1 DF AT 15 GESTATIONAL WEEK
     Route: 042
  13. NON-PMN MORPHINE SULFATE [Suspect]
     Active Substance: MORPHINE SULFATE
     Indication: MATERNAL USE OF ILLICIT DRUGS
     Dosage: 600 MG BETWEEN 32-37 GESTATIONAL WEEKS
     Route: 048
  14. NON-PMN MORPHINE SULFATE [Suspect]
     Active Substance: MORPHINE SULFATE
     Dosage: 400 MG AT 21 GESTATIONAL WEEK
     Route: 048
  15. FENTANYL. [Suspect]
     Active Substance: FENTANYL
     Indication: MATERNAL USE OF ILLICIT DRUGS
     Dosage: 1 DF AT 31 GESTATIONAL WEEK
     Route: 042
  16. FENTANYL. [Suspect]
     Active Substance: FENTANYL
     Dosage: 1 DF AT 21 GESTATIONAL WEEK
     Route: 042
  17. NON-PMN MORPHINE SULFATE [Suspect]
     Active Substance: MORPHINE SULFATE
     Dosage: 100 MG AT 31 GESTATIONAL WEEK
     Route: 048
  18. NON-PMN MORPHINE SULFATE [Suspect]
     Active Substance: MORPHINE SULFATE
     Dosage: 30 MG AT 28 GESTATIONAL WEEK
     Route: 048
  19. NON-PMN HYDROMORPHONE HCL [Suspect]
     Active Substance: HYDROMORPHONE HYDROCHLORIDE
     Dosage: 75 MG BID BETWEEN 32-37 GESTATIONAL WEEKS
     Route: 042
  20. FENTANYL. [Suspect]
     Active Substance: FENTANYL
     Dosage: 10 DF AT 7 GESTATIONAL WEEK
  21. METHADONE [Suspect]
     Active Substance: METHADONE HYDROCHLORIDE
     Dosage: 90 MG AT 9 GESTATIONAL WEEK
     Route: 065
  22. LEVAMISOLE [Concomitant]
     Active Substance: LEVAMISOLE
     Indication: MATERNAL USE OF ILLICIT DRUGS
     Dosage: UNK
     Route: 065
  23. NON-PMN MORPHINE SULFATE [Suspect]
     Active Substance: MORPHINE SULFATE
     Dosage: 400 MG AT 9 GESTATIONAL WEEK
     Route: 048
  24. NON-PMN HYDROMORPHONE HCL [Suspect]
     Active Substance: HYDROMORPHONE HYDROCHLORIDE
     Dosage: 90 MG, BID
     Route: 042
  25. FENTANYL. [Suspect]
     Active Substance: FENTANYL
     Dosage: 1 DF AT 28 GESTATIONAL WEEK
     Route: 042
  26. FENTANYL. [Suspect]
     Active Substance: FENTANYL
     Dosage: 1 DF AT 9 GESTATIONAL WEEK
     Route: 042
  27. METHADONE [Suspect]
     Active Substance: METHADONE HYDROCHLORIDE
     Indication: MATERNAL USE OF ILLICIT DRUGS
     Dosage: 145 MG BETWEEN 32-37 GESTATIONAL WEEK
     Route: 065
  28. METHADONE [Suspect]
     Active Substance: METHADONE HYDROCHLORIDE
     Dosage: 65 MG 29 GESTATIONAL WEEK
     Route: 065
  29. METHADONE [Suspect]
     Active Substance: METHADONE HYDROCHLORIDE
     Dosage: 30 MG AT 24 GESTATIONAL WEEK
     Route: 065
  30. METHADONE [Suspect]
     Active Substance: METHADONE HYDROCHLORIDE
     Dosage: 135 MG AT 19 GESTATIONAL WEEK
     Route: 065
  31. METHADONE [Suspect]
     Active Substance: METHADONE HYDROCHLORIDE
     Dosage: 60 MG AT 7 GESTATIONAL WEEK
     Route: 065
  32. COCAINE [Concomitant]
     Active Substance: COCAINE
     Indication: MATERNAL USE OF ILLICIT DRUGS
     Dosage: UNK
     Route: 065
  33. NON-PMN MORPHINE SULFATE [Suspect]
     Active Substance: MORPHINE SULFATE
     Dosage: 30 MG AT 26 GESTATIONAL WEEK
     Route: 048
  34. NON-PMN MORPHINE SULFATE [Suspect]
     Active Substance: MORPHINE SULFATE
     Dosage: 360 MG AT 15 GESTATIONAL WEEK
     Route: 048
  35. FENTANYL. [Suspect]
     Active Substance: FENTANYL
     Dosage: 10 DF AT 24 GESTATIONAL WEEK
     Route: 042
  36. METHADONE [Suspect]
     Active Substance: METHADONE HYDROCHLORIDE
     Dosage: 50 MG, AT 26 GESTATIONAL WEEK
     Route: 065
  37. METHADONE [Suspect]
     Active Substance: METHADONE HYDROCHLORIDE
     Dosage: 145 MG AT 21 GESTATIONAL WEEK
     Route: 065
  38. METHADONE [Suspect]
     Active Substance: METHADONE HYDROCHLORIDE
     Dosage: 125 MG AT 15 GESTATIONAL WEEK
     Route: 065
  39. NON-PMN MORPHINE SULFATE [Suspect]
     Active Substance: MORPHINE SULFATE
     Dosage: 30 MG AT 24 GESTATIONAL WEEK
     Route: 048
  40. FENTANYL. [Suspect]
     Active Substance: FENTANYL
     Dosage: 1 DF AT 30 GESTATIONAL WEEK
     Route: 042
  41. FENTANYL. [Suspect]
     Active Substance: FENTANYL
     Dosage: 1 DF AT 29 GESTATIONAL WEEK
     Route: 042
  42. METHADONE [Suspect]
     Active Substance: METHADONE HYDROCHLORIDE
     Dosage: 95 MG AT 31 GESTATIONAL WEEK
     Route: 065
  43. METHADONE [Suspect]
     Active Substance: METHADONE HYDROCHLORIDE
     Dosage: 50 MG AT 28 GESTATIONAL WEEK
     Route: 065
  44. METHADONE [Suspect]
     Active Substance: METHADONE HYDROCHLORIDE
     Dosage: 110 MG AT 11 GESTATIONAL WEEK
     Route: 065

REACTIONS (5)
  - Drug abuse [Unknown]
  - Drug tolerance [Unknown]
  - Maternal exposure during pregnancy [Recovered/Resolved]
  - Sedation [Unknown]
  - Electrocardiogram QT prolonged [Unknown]
